FAERS Safety Report 18730643 (Version 1)
Quarter: 2021Q1

REPORT INFORMATION
  Report Type: Spontaneous
  Country: US (occurrence: US)
  Receive Date: 20210112
  Receipt Date: 20210112
  Transmission Date: 20210419
  Serious: Yes (Other)
  Sender: FDA-Public Use
  Company Number: None

PATIENT

DRUGS (1)
  1. HEPARIN [Suspect]
     Active Substance: HEPARIN SODIUM
     Indication: ANTICOAGULANT THERAPY
     Route: 040
     Dates: start: 20210106, end: 20210106

REACTIONS (1)
  - Anticoagulation drug level below therapeutic [None]

NARRATIVE: CASE EVENT DATE: 20210106
